FAERS Safety Report 11305172 (Version 1)
Quarter: 2015Q3

REPORT INFORMATION
  Report Type: Spontaneous
  Country: US (occurrence: US)
  Receive Date: 20150723
  Receipt Date: 20150723
  Transmission Date: 20151125
  Serious: No
  Sender: FDA-Public Use
  Company Number: US-JNJFOC-20141104311

PATIENT
  Age: 35 Year
  Sex: Female
  Weight: 49.9 kg

DRUGS (2)
  1. ZYRTEC [Suspect]
     Active Substance: CETIRIZINE HYDROCHLORIDE
     Indication: SNEEZING
     Dosage: ONE TABLET,ONCE
     Route: 048
     Dates: start: 20141103
  2. ZYRTEC [Suspect]
     Active Substance: CETIRIZINE HYDROCHLORIDE
     Indication: LACRIMATION INCREASED
     Dosage: ONE TABLET,ONCE
     Route: 048
     Dates: start: 20141103

REACTIONS (2)
  - Product packaging quantity issue [Unknown]
  - Expired product administered [Unknown]
